FAERS Safety Report 10926749 (Version 2)
Quarter: 2015Q4

REPORT INFORMATION
  Report Type: Spontaneous
  Country: US (occurrence: US)
  Receive Date: 20150318
  Receipt Date: 20151009
  Transmission Date: 20160304
  Serious: No
  Sender: FDA-Public Use
  Company Number: US-ASTRAZENECA-2015SE21923

PATIENT
  Sex: Female

DRUGS (1)
  1. SYMBICORT [Suspect]
     Active Substance: BUDESONIDE\FORMOTEROL FUMARATE DIHYDRATE
     Indication: DYSPNOEA
     Dosage: 80MCG/4.5MCG, 2 PUFFS, TWO TIMES A DAY
     Route: 055

REACTIONS (3)
  - Dyspnoea [Unknown]
  - Device failure [Unknown]
  - Product use issue [Unknown]
